FAERS Safety Report 23217693 (Version 5)
Quarter: 2024Q1

REPORT INFORMATION
  Report Type: Report from Study
  Country: US (occurrence: US)
  Receive Date: 20231122
  Receipt Date: 20240328
  Transmission Date: 20240410
  Serious: Yes (Other)
  Sender: FDA-Public Use
  Company Number: US-002147023-NVSC2023US246612

PATIENT
  Sex: Female

DRUGS (1)
  1. KESIMPTA [Suspect]
     Active Substance: OFATUMUMAB
     Indication: Relapsing-remitting multiple sclerosis
     Dosage: UNK, QMO
     Route: 065
     Dates: start: 20230829

REACTIONS (8)
  - Seizure [Unknown]
  - Multiple sclerosis relapse [Unknown]
  - Amnesia [Unknown]
  - Balance disorder [Unknown]
  - Altered visual depth perception [Unknown]
  - Vision blurred [Unknown]
  - COVID-19 [Unknown]
  - Therapeutic response shortened [Unknown]
